FAERS Safety Report 10267377 (Version 1)
Quarter: 2014Q2

REPORT INFORMATION
  Report Type: Spontaneous
  Country: CN (occurrence: CN)
  Receive Date: 20140630
  Receipt Date: 20140630
  Transmission Date: 20141212
  Serious: Yes (Death)
  Sender: FDA-Public Use
  Company Number: CN-ASTELLAS-2014JP012313

PATIENT
  Age: 60 Year
  Sex: Male
  Weight: 56 kg

DRUGS (1)
  1. MYCAMINE [Suspect]
     Indication: FUNGAL INFECTION
     Route: 042
     Dates: start: 20140617, end: 20140623

REACTIONS (2)
  - Death [Fatal]
  - Drug ineffective [Unknown]
